FAERS Safety Report 8157598-X (Version None)
Quarter: 2012Q1

REPORT INFORMATION
  Report Type: 
  Country: None (occurrence: None)
  Receive Date: 20120222
  Receipt Date: 20110610
  Transmission Date: 20120608
  Serious: Yes (Other)
  Sender: FDA-Public Use
  Company Number: US-ASTRAZENECA-2011SE35919

PATIENT
  Sex: Male

DRUGS (17)
  1. TENORMIN [Suspect]
     Route: 048
     Dates: start: 20110102
  2. NEVANAC [Concomitant]
     Dates: start: 20110102
  3. TRAZODONE HYDROCHLORIDE [Concomitant]
     Dates: start: 20101218
  4. SIMVASTATIN [Concomitant]
     Dates: start: 20110101
  5. ZOLPIDEM [Concomitant]
     Dates: start: 20101206
  6. PRAMIPEXOLE DIHYCHLLORIDE [Concomitant]
     Dates: start: 20110106
  7. LOSARTAN POTASSIUM [Concomitant]
     Dates: start: 20110101
  8. KLOR-CON [Concomitant]
     Dosage: 20 MEQ-ER
     Dates: start: 20110101
  9. PRAMIPEXOLE DIHYCHLLORIDE [Concomitant]
     Dates: start: 20110121
  10. VIGAMOX DRO [Concomitant]
     Dates: start: 20110104
  11. LOSARTAN POTASSIUM [Concomitant]
     Dates: start: 20101221
  12. ASMANEX TWISTHALER [Concomitant]
     Dosage: 60 AER 220 MCG
     Dates: start: 20101221
  13. TORSEMIDE [Concomitant]
  14. TRAZODONE HYDROCHLORIDE [Concomitant]
     Dates: start: 20110102
  15. CARBIDOPA AND LEVODOPA [Concomitant]
     Dosage: 25-100 MG
     Dates: start: 20110101
  16. ASMANEX TWISTHALER [Concomitant]
     Dosage: 60 AER 220 MCG
     Dates: start: 20110101
  17. PREDNISOLONE [Concomitant]
     Dates: start: 20110104

REACTIONS (3)
  - FALL [None]
  - HYPERTENSION [None]
  - CARDIAC FAILURE [None]
